FAERS Safety Report 14167174 (Version 1)
Quarter: 2017Q4

REPORT INFORMATION
  Report Type: Spontaneous
  Country: US (occurrence: US)
  Receive Date: 20171107
  Receipt Date: 20171107
  Transmission Date: 20180321
  Serious: No
  Sender: FDA-Public Use
  Company Number: US-G+W LABS-GW2017US000196

PATIENT

DRUGS (4)
  1. LIPITOR [Concomitant]
     Active Substance: ATORVASTATIN CALCIUM
     Indication: BLOOD CHOLESTEROL INCREASED
     Dosage: UNK,DAILY
  2. NEXIUM [Concomitant]
     Active Substance: ESOMEPRAZOLE MAGNESIUM
     Indication: PRODUCT USED FOR UNKNOWN INDICATION
     Dosage: UNK, DAILY
  3. CICLOPIROX. [Suspect]
     Active Substance: CICLOPIROX
     Indication: ONYCHOMYCOSIS
     Dosage: 8 %, QD
     Route: 061
     Dates: start: 20170630, end: 20170701
  4. METFORMIN [Concomitant]
     Active Substance: METFORMIN HYDROCHLORIDE
     Indication: TYPE 2 DIABETES MELLITUS
     Dosage: UNK, DAILY

REACTIONS (9)
  - Nail discolouration [Not Recovered/Not Resolved]
  - Erythema [Not Recovered/Not Resolved]
  - Localised infection [Unknown]
  - Oedema peripheral [Recovered/Resolved]
  - Skin exfoliation [Unknown]
  - Pain in extremity [Recovered/Resolved]
  - Hyperaesthesia [Not Recovered/Not Resolved]
  - Onychomadesis [Unknown]
  - Onychalgia [Not Recovered/Not Resolved]

NARRATIVE: CASE EVENT DATE: 201707
